FAERS Safety Report 9803000 (Version 1)
Quarter: 2014Q1

REPORT INFORMATION
  Report Type: Spontaneous
  Country: US (occurrence: None)
  Receive Date: 20140106
  Receipt Date: 20140106
  Transmission Date: 20141002
  Serious: Yes (Other)
  Sender: FDA-Public Use
  Company Number: None

PATIENT
  Age: 57 Year
  Sex: Female

DRUGS (1)
  1. LIDOCAINE PATCH [Suspect]
     Indication: POST HERPETIC NEURALGIA
     Dosage: 1 TO 3 PATCHES, 12 HR ON/12 HR OFF, APPLIED TO SURFACE, USUALLY THE SKIN

REACTIONS (5)
  - Drug ineffective [None]
  - Product substitution issue [None]
  - Product quality issue [None]
  - Product adhesion issue [None]
  - Product physical issue [None]
